FAERS Safety Report 7635984-1 (Version None)
Quarter: 2011Q3

REPORT INFORMATION
  Report Type: 
  Country: None (occurrence: None)
  Receive Date: 20110726
  Receipt Date: 20110715
  Transmission Date: 20111222
  Serious: Yes (Other)
  Sender: FDA-Public Use
  Company Number: IT-BAXTER-2011BH023425

PATIENT

DRUGS (4)
  1. ANACONDA [Concomitant]
     Indication: TETANUS
     Route: 065
  2. PROPOFOL [Concomitant]
     Indication: TETANUS
     Route: 065
  3. DIAZEPAM [Concomitant]
     Indication: TETANUS
     Route: 065
  4. SEVOFLURANE [Suspect]
     Indication: TETANUS
     Route: 065

REACTIONS (2)
  - TOXICITY TO VARIOUS AGENTS [None]
  - RENAL IMPAIRMENT [None]
